FAERS Safety Report 6889030-8 (Version None)
Quarter: 2010Q3

REPORT INFORMATION
  Report Type: 
  Country: None (occurrence: None)
  Receive Date: 20100730
  Receipt Date: 20071220
  Transmission Date: 20110219
  Serious: Yes (Other)
  Sender: FDA-Public Use
  Company Number: US-PFIZER INC-2007039365

PATIENT
  Sex: Female
  Weight: 53.5 kg

DRUGS (1)
  1. LIPITOR [Suspect]
     Indication: HYPERLIPIDAEMIA
     Dates: start: 20050808, end: 20051118

REACTIONS (2)
  - HEPATIC ENZYME INCREASED [None]
  - MYALGIA [None]
